FAERS Safety Report 6986675-1 (Version None)
Quarter: 2010Q3

REPORT INFORMATION
  Report Type: 
  Country: None (occurrence: None)
  Receive Date: 20100915
  Receipt Date: 20090728
  Transmission Date: 20110219
  Serious: No
  Sender: FDA-Public Use
  Company Number: US-WYE-H10347909

PATIENT
  Age: 55 Year
  Sex: Female

DRUGS (4)
  1. PRISTIQ [Suspect]
     Indication: DEPRESSION
     Dosage: 50 MG EVERY 1 TOT
     Route: 048
     Dates: start: 20090707, end: 20090707
  2. ESTROGEN NOS [Concomitant]
  3. KLONOPIN [Concomitant]
  4. LITHIUM CARBONATE [Interacting]
     Indication: ATTENTION DEFICIT/HYPERACTIVITY DISORDER
     Route: 048

REACTIONS (3)
  - DRUG INTERACTION [None]
  - HOT FLUSH [None]
  - UNEVALUABLE EVENT [None]
